FAERS Safety Report 23921407 (Version 1)
Quarter: 2024Q2

REPORT INFORMATION
  Report Type: Spontaneous
  Country: CA (occurrence: CA)
  Receive Date: 20240530
  Receipt Date: 20240530
  Transmission Date: 20240716
  Serious: Yes (Hospitalization, Other)
  Sender: FDA-Public Use
  Company Number: CA-AstraZeneca-2024A120337

PATIENT
  Age: 52 Year
  Sex: Female
  Weight: 101 kg

DRUGS (12)
  1. TRASTUZUMAB DERUXTECAN [Suspect]
     Active Substance: TRASTUZUMAB DERUXTECAN
     Indication: HER2 positive breast cancer
     Dosage: 448 MG, ONCE EVERY 3 WK
     Route: 042
  2. APIXABAN [Concomitant]
     Active Substance: APIXABAN
     Indication: Product used for unknown indication
     Dosage: UNK
     Route: 065
  3. AZATHIOPRINE [Concomitant]
     Active Substance: AZATHIOPRINE
     Indication: Product used for unknown indication
     Dosage: UNK
     Route: 065
  4. DEXAMETHASONE [Concomitant]
     Active Substance: DEXAMETHASONE
     Indication: Product used for unknown indication
     Dosage: UNK
     Route: 065
  5. HYDROMORPHONE [Concomitant]
     Active Substance: HYDROMORPHONE
     Indication: Product used for unknown indication
     Dosage: UNK
     Route: 065
  6. LIDOCAINE [Concomitant]
     Active Substance: LIDOCAINE
     Indication: Product used for unknown indication
     Dosage: UNK
     Route: 065
  7. PANTOPRAZOLE SODIUM [Concomitant]
     Active Substance: PANTOPRAZOLE SODIUM
     Indication: Product used for unknown indication
     Dosage: UNK
     Route: 065
  8. PREDNISONE [Concomitant]
     Active Substance: PREDNISONE
     Indication: Product used for unknown indication
     Dosage: UNK
     Route: 065
  9. ROSUVASTATIN CALCIUM [Concomitant]
     Active Substance: ROSUVASTATIN CALCIUM
     Indication: Product used for unknown indication
     Dosage: UNK
     Route: 058
  10. VALACYCLOVIR [Concomitant]
     Active Substance: VALACYCLOVIR HYDROCHLORIDE
     Indication: Product used for unknown indication
     Dosage: UNK
     Route: 065
  11. CHOLECALCIFEROL [Concomitant]
     Active Substance: CHOLECALCIFEROL
     Indication: Product used for unknown indication
     Dosage: UNK
     Route: 065
  12. RANITIDINE [Concomitant]
     Active Substance: RANITIDINE
     Indication: Product used for unknown indication
     Dosage: UNK
     Route: 065

REACTIONS (30)
  - Acute kidney injury [Unknown]
  - Atelectasis [Unknown]
  - Blood bicarbonate decreased [Unknown]
  - Blood creatinine increased [Unknown]
  - Chest pain [Unknown]
  - Electrolyte imbalance [Unknown]
  - Extravasation [Unknown]
  - Glomerular filtration rate decreased [Unknown]
  - Heart rate increased [Unknown]
  - Hypoalbuminaemia [Unknown]
  - Hypomagnesaemia [Unknown]
  - Hypophagia [Unknown]
  - Immobilisation prolonged [Unknown]
  - Mucosal inflammation [Unknown]
  - Oedema peripheral [Unknown]
  - Oral herpes [Unknown]
  - Pain [Unknown]
  - Pain in extremity [Unknown]
  - Renal tubular necrosis [Unknown]
  - Respiratory rate increased [Unknown]
  - Swelling [Unknown]
  - Wheezing [Unknown]
  - White blood cell count abnormal [Unknown]
  - Dyspnoea [Unknown]
  - Diarrhoea [Unknown]
  - Asthenia [Unknown]
  - Hypokalaemia [Unknown]
  - Fatigue [Unknown]
  - Cough [Unknown]
  - Anaemia [Unknown]
